FAERS Safety Report 16285794 (Version 2)
Quarter: 2019Q2

REPORT INFORMATION
  Report Type: Spontaneous
  Country: IT (occurrence: IT)
  Receive Date: 20190508
  Receipt Date: 20190510
  Transmission Date: 20190711
  Serious: Yes (Other)
  Sender: FDA-Public Use
  Company Number: IT-PFIZER INC-2019196132

PATIENT
  Age: 63 Year
  Sex: Female
  Weight: 66 kg

DRUGS (2)
  1. PACLITAXEL. [Suspect]
     Active Substance: PACLITAXEL
     Indication: HEPATIC CANCER
     Dosage: 220 MG, CYCLIC
     Route: 042
     Dates: start: 20180913, end: 20190328
  2. CISPLATIN. [Suspect]
     Active Substance: CISPLATIN
     Indication: HEPATIC CANCER
     Dosage: 100 MG, CYCLIC
     Route: 042
     Dates: start: 20180913, end: 20190328

REACTIONS (2)
  - Neutropenia [Recovering/Resolving]
  - Lymphopenia [Recovering/Resolving]

NARRATIVE: CASE EVENT DATE: 20190325
